FAERS Safety Report 5839476-1 (Version None)
Quarter: 2008Q3

REPORT INFORMATION
  Report Type: 
  Country: None (occurrence: None)
  Receive Date: 20080807
  Receipt Date: 20080731
  Transmission Date: 20090109
  Serious: Yes (Death)
  Sender: FDA-Public Use
  Company Number: 230211J08BRA

PATIENT
  Age: 33 Year
  Sex: Female

DRUGS (1)
  1. REBIF [Suspect]
     Indication: MULTIPLE SCLEROSIS
     Dosage: 22 MCG, 3 IN 1 WEEKS
     Dates: start: 20060301, end: 20080204

REACTIONS (7)
  - ASPIRATION [None]
  - CONDITION AGGRAVATED [None]
  - DISEASE PROGRESSION [None]
  - ESCHAR [None]
  - INCREASED UPPER AIRWAY SECRETION [None]
  - MULTIPLE SCLEROSIS [None]
  - POST PROCEDURAL COMPLICATION [None]
